FAERS Safety Report 11026886 (Version 1)
Quarter: 2015Q2

REPORT INFORMATION
  Report Type: Spontaneous
  Country: US (occurrence: US)
  Receive Date: 20150414
  Receipt Date: 20150414
  Transmission Date: 20150821
  Serious: Yes (Other)
  Sender: FDA-Public Use
  Company Number: US-BAYER-2015-119811

PATIENT
  Age: 23 Year
  Sex: Female

DRUGS (1)
  1. MIRENA [Suspect]
     Active Substance: LEVONORGESTREL
     Indication: CONTRACEPTION
     Dosage: 20 MCG/24HR, CONT
     Route: 015
     Dates: start: 20121212, end: 20140513

REACTIONS (5)
  - Drug ineffective [None]
  - Genital haemorrhage [None]
  - Device dislocation [None]
  - Abdominal pain [None]
  - Pregnancy with contraceptive device [None]

NARRATIVE: CASE EVENT DATE: 2013
